FAERS Safety Report 19191505 (Version 1)
Quarter: 2021Q2

REPORT INFORMATION
  Report Type: Spontaneous
  Country: US (occurrence: US)
  Receive Date: 20210428
  Receipt Date: 20210428
  Transmission Date: 20210717
  Serious: Yes (Other)
  Sender: FDA-Public Use
  Company Number: US-BAUSCH-BL-2021-013631

PATIENT
  Sex: Male

DRUGS (2)
  1. UCERIS [Suspect]
     Active Substance: BUDESONIDE
     Indication: COLITIS
     Route: 054
  2. UCERIS [Suspect]
     Active Substance: BUDESONIDE
     Route: 054

REACTIONS (5)
  - Incorrect dose administered [Unknown]
  - Product quality issue [Unknown]
  - Colitis [Not Recovered/Not Resolved]
  - Product physical consistency issue [Unknown]
  - Product use issue [Unknown]

NARRATIVE: CASE EVENT DATE: 2021
